FAERS Safety Report 8328951-6 (Version None)
Quarter: 2012Q2

REPORT INFORMATION
  Report Type: 
  Country: None (occurrence: None)
  Receive Date: 20120502
  Receipt Date: 20101122
  Transmission Date: 20120825
  Serious: No
  Sender: FDA-Public Use
  Company Number: US-TEVA-2010005358

PATIENT
  Sex: Female
  Weight: 49.032 kg

DRUGS (2)
  1. NUVIGIL [Suspect]
     Indication: FATIGUE
     Dosage: 150 MILLIGRAM;
     Route: 048
     Dates: start: 20100801, end: 20101008
  2. COPOAXONE [Suspect]
     Dates: start: 20040101

REACTIONS (6)
  - ANXIETY [None]
  - DEPRESSION [None]
  - CRYING [None]
  - ABDOMINAL PAIN UPPER [None]
  - FEELING ABNORMAL [None]
  - HEADACHE [None]
